FAERS Safety Report 20311092 (Version 1)
Quarter: 2022Q1

REPORT INFORMATION
  Report Type: Spontaneous
  Country: CN (occurrence: CN)
  Receive Date: 20220107
  Receipt Date: 20220107
  Transmission Date: 20220423
  Serious: Yes (Other)
  Sender: FDA-Public Use
  Company Number: CN-NAPPMUNDI-GBR-2021-0094096

PATIENT
  Age: 56 Year
  Sex: Female
  Weight: 38 kg

DRUGS (4)
  1. OXYCONTIN [Suspect]
     Active Substance: OXYCODONE HYDROCHLORIDE
     Indication: Cancer pain
     Dosage: 160 MG, Q12H
     Route: 048
     Dates: start: 20211112
  2. OXYCONTIN [Suspect]
     Active Substance: OXYCODONE HYDROCHLORIDE
     Dosage: 120 MG, Q12H
     Route: 048
     Dates: start: 20211111, end: 20211112
  3. OXYCONTIN [Suspect]
     Active Substance: OXYCODONE HYDROCHLORIDE
     Dosage: 160 MG, Q12H
     Route: 048
     Dates: start: 20211102, end: 20211111
  4. PREGABALIN [Concomitant]
     Active Substance: PREGABALIN
     Dosage: 75 MG, BID
     Route: 048
     Dates: start: 20211111

REACTIONS (2)
  - Delirium [Not Recovered/Not Resolved]
  - Inadequate analgesia [Unknown]

NARRATIVE: CASE EVENT DATE: 20211110
